FAERS Safety Report 6249333-7 (Version None)
Quarter: 2009Q2

REPORT INFORMATION
  Report Type: 
  Country: None (occurrence: None)
  Receive Date: 20090629
  Receipt Date: 20090618
  Transmission Date: 20091009
  Serious: Yes (Hospitalization)
  Sender: FDA-Public Use
  Company Number: US-MERCK-0705USA05556

PATIENT
  Age: 64 Year
  Sex: Male

DRUGS (1)
  1. FOSAMAX [Suspect]
     Indication: OSTEOPOROSIS
     Route: 048
     Dates: start: 19990101, end: 20030101

REACTIONS (21)
  - ARRHYTHMIA [None]
  - ASTHMA [None]
  - ATRIAL FIBRILLATION [None]
  - ATRIOVENTRICULAR BLOCK [None]
  - BENIGN PROSTATIC HYPERPLASIA [None]
  - BLOOD CHOLESTEROL INCREASED [None]
  - BODY MASS INDEX DECREASED [None]
  - BRADYCARDIA [None]
  - BUNDLE BRANCH BLOCK RIGHT [None]
  - CARDIAC DISORDER [None]
  - ELECTROCARDIOGRAM ABNORMAL [None]
  - EXTRASYSTOLES [None]
  - FALL [None]
  - FOOT FRACTURE [None]
  - HYPERTENSION [None]
  - SICK SINUS SYNDROME [None]
  - SINUS ARREST [None]
  - SINUS ARRHYTHMIA [None]
  - TOBACCO ABUSE [None]
  - TOOTH LOSS [None]
  - VENTRICULAR EXTRASYSTOLES [None]
